FAERS Safety Report 8375254 (Version 2)
Quarter: 2013Q1

REPORT INFORMATION
  Report Type: Report from Study
  Country: US (occurrence: US)
  Receive Date: 20120129
  Receipt Date: 20130129
  Transmission Date: 20140127
  Serious: Yes (Hospitalization)
  Sender: FDA-Public Use
  Company Number: US-ABBOTT-11P-163-0887823-00

PATIENT
  Sex: Male
  Weight: 92.16 kg

DRUGS (1)
  1. HUMIRA 40 MG/0.8 ML PEN [Suspect]
     Indication: RHEUMATOID ARTHRITIS
     Dates: start: 20081219, end: 201105

REACTIONS (5)
  - Thrombosis [Recovered/Resolved]
  - Peripheral vascular disorder [Not Recovered/Not Resolved]
  - Limb injury [Recovering/Resolving]
  - Impaired healing [Recovering/Resolving]
  - Cellulitis [Recovered/Resolved]
